FAERS Safety Report 10038288 (Version 2)
Quarter: 2014Q2

REPORT INFORMATION
  Report Type: Spontaneous
  Country: US (occurrence: US)
  Receive Date: 20140326
  Receipt Date: 20140508
  Transmission Date: 20141212
  Serious: Yes (Hospitalization)
  Sender: FDA-Public Use
  Company Number: US-BAXTER-2014BAX014850

PATIENT
  Sex: Male
  Weight: 117 kg

DRUGS (6)
  1. DIANEAL LOW CALCIUM [Suspect]
     Indication: DIABETES MELLITUS
     Route: 033
  2. DIANEAL LOW CALCIUM [Suspect]
     Dosage: LAST FILL
     Route: 033
  3. DIANEAL LOW CALCIUM [Suspect]
     Indication: DIABETES MELLITUS
     Route: 033
  4. DIANEAL LOW CALCIUM [Suspect]
     Dosage: LAST FILL
     Route: 033
  5. EXTRANEAL [Suspect]
     Indication: DIABETES MELLITUS
     Route: 033
  6. EXTRANEAL [Suspect]
     Dosage: LAST FILL
     Route: 033

REACTIONS (3)
  - Pain [Unknown]
  - Fluid retention [Recovering/Resolving]
  - Thrombosis [Unknown]
